FAERS Safety Report 18342574 (Version 2)
Quarter: 2021Q2

REPORT INFORMATION
  Report Type: Report from Study
  Country: US (occurrence: US)
  Receive Date: 20201005
  Receipt Date: 20210416
  Transmission Date: 20210717
  Serious: Yes (Hospitalization)
  Sender: FDA-Public Use
  Company Number: US-INSMED, INC.-US-INS-20-01841

PATIENT
  Age: 82 Year
  Sex: Male

DRUGS (2)
  1. ARIKAYCE [Suspect]
     Active Substance: AMIKACIN
     Dosage: 590 MILLIGRAM, QD
     Route: 055
     Dates: start: 20210401
  2. ARIKAYCE [Suspect]
     Active Substance: AMIKACIN
     Indication: MYCOBACTERIUM AVIUM COMPLEX INFECTION
     Dosage: 590 MILLIGRAM
     Route: 055

REACTIONS (5)
  - Hospitalisation [Unknown]
  - Pyrexia [Unknown]
  - Night sweats [Unknown]
  - Weight decreased [Unknown]
  - Productive cough [Recovered/Resolved]

NARRATIVE: CASE EVENT DATE: 20210401
